FAERS Safety Report 5859198-0 (Version None)
Quarter: 2008Q3

REPORT INFORMATION
  Report Type: 
  Country: None (occurrence: None)
  Receive Date: 20080827
  Receipt Date: 20080821
  Transmission Date: 20090109
  Serious: Yes (Other)
  Sender: FDA-Public Use
  Company Number: US-BAXTER-2008BH007635

PATIENT
  Sex: Female

DRUGS (1)
  1. FLAGYL I.V. RTU [Suspect]
     Indication: INFECTION PROPHYLAXIS
     Dosage: DOSE UNIT:UNKNOWN
     Route: 042
     Dates: start: 20080718, end: 20080718

REACTIONS (1)
  - CARDIAC DISORDER [None]
